FAERS Safety Report 6871207-9 (Version None)
Quarter: 2010Q3

REPORT INFORMATION
  Report Type: 
  Country: None (occurrence: None)
  Receive Date: 20100723
  Receipt Date: 20100715
  Transmission Date: 20110219
  Serious: Yes (Other)
  Sender: FDA-Public Use
  Company Number: FR-ROCHE-715975

PATIENT
  Sex: Female

DRUGS (6)
  1. HERCEPTIN [Suspect]
     Indication: BREAST CANCER
     Route: 042
     Dates: start: 20090112, end: 20100506
  2. FLUOROURACIL [Suspect]
     Indication: BREAST CANCER
     Dosage: DRUG RPTD: FLUOROURACILE, RECEIVED 4 COURSES
     Route: 042
     Dates: start: 20081020, end: 20081227
  3. CYCLOPHOSPHAMIDE [Suspect]
     Indication: BREAST CANCER
     Dosage: RECEIVED 4 COURSES
     Route: 042
     Dates: start: 20081020, end: 20081222
  4. EPIRUBICIN [Suspect]
     Indication: BREAST CANCER
     Dosage: RECEIVED 4 COURSES
     Route: 042
     Dates: start: 20081020, end: 20081222
  5. TAXOTERE [Suspect]
     Indication: PRODUCT USED FOR UNKNOWN INDICATION
     Dosage: RECEIVED 4 COURSES
     Route: 042
     Dates: start: 20090113, end: 20090319
  6. TAMOXIFEN CITRATE [Suspect]
     Indication: PRODUCT USED FOR UNKNOWN INDICATION
     Dosage: DRUG REPORTED: CITRATE DE TAMOXIFENE
     Route: 048
     Dates: start: 20090301

REACTIONS (1)
  - ALOPECIA [None]
